FAERS Safety Report 9287603 (Version 2)
Quarter: 2013Q2

REPORT INFORMATION
  Report Type: Report from Study
  Country: CA (occurrence: CA)
  Receive Date: 20130514
  Receipt Date: 20130603
  Transmission Date: 20140414
  Serious: Yes (Hospitalization, Other)
  Sender: FDA-Public Use
  Company Number: CA-ROCHE-1223954

PATIENT
  Age: 50 Year
  Sex: Female
  Weight: 73.5 kg

DRUGS (13)
  1. RITUXAN [Suspect]
     Indication: RHEUMATOID ARTHRITIS
     Dosage: RECENT DOSE PRIOR TO SAE: 21/AUG/2012
     Route: 042
     Dates: start: 20120802
  2. DIPHENHYDRAMINE HCL [Concomitant]
     Indication: PREMEDICATION
     Route: 048
     Dates: start: 20120802
  3. ACETAMINOPHEN [Concomitant]
     Indication: PREMEDICATION
     Route: 048
     Dates: start: 20120802
  4. METHYLPREDNISOLONE [Concomitant]
     Indication: PREMEDICATION
     Route: 042
     Dates: start: 20120802
  5. METHOTREXATE [Concomitant]
  6. FOLIC ACID [Concomitant]
  7. ARTHROTEC [Concomitant]
  8. MAVIK [Concomitant]
  9. OXYCONTIN [Concomitant]
  10. PREDNISONE [Concomitant]
     Dosage: 3 DAYS
     Route: 065
  11. GABAPENTIN [Concomitant]
  12. CYMBALTA [Concomitant]
  13. BISOPROLOL [Concomitant]

REACTIONS (5)
  - Bile duct stone [Recovered/Resolved]
  - Cardiomyopathy [Unknown]
  - Rheumatoid arthritis [Not Recovered/Not Resolved]
  - Joint swelling [Not Recovered/Not Resolved]
  - Arthritis [Not Recovered/Not Resolved]
